FAERS Safety Report 6086315-2 (Version None)
Quarter: 2009Q1

REPORT INFORMATION
  Report Type: 
  Country: None (occurrence: None)
  Receive Date: 20090220
  Receipt Date: 20081211
  Transmission Date: 20090719
  Serious: Yes (Hospitalization)
  Sender: FDA-Public Use
  Company Number: US-ASTRAZENECA-2008UW21916

PATIENT
  Age: 56 Year
  Sex: Female
  Weight: 205.5 kg

DRUGS (9)
  1. FELODIPINE [Suspect]
     Indication: HYPERTENSION
     Route: 048
     Dates: start: 19930101, end: 20080724
  2. FELODIPINE [Suspect]
     Route: 048
     Dates: start: 20080725
  3. HYDROCHLOROTHIAZIDE [Suspect]
     Indication: HYPERTENSION
     Route: 048
     Dates: start: 19930101
  4. ENALAPRIL [Suspect]
     Indication: HYPERTENSION
     Route: 048
     Dates: start: 19930101, end: 20080719
  5. CP-945.598 CODE NOT BROKEN [Suspect]
     Indication: WEIGHT CONTROL
     Route: 048
     Dates: start: 20080625, end: 20080714
  6. ACETYLSALICYLIC ACID SRT [Concomitant]
     Route: 048
     Dates: start: 20050101
  7. TYLENOL [Concomitant]
     Route: 048
     Dates: start: 20030101
  8. COD LIVER OIL [Concomitant]
     Route: 048
     Dates: start: 20080428
  9. GERITOL VITAMINS [Concomitant]
     Route: 048
     Dates: start: 20080429

REACTIONS (1)
  - DYSPNOEA [None]
